FAERS Safety Report 16826281 (Version 1)
Quarter: 2019Q3

REPORT INFORMATION
  Report Type: Spontaneous
  Country: US (occurrence: US)
  Receive Date: 20190919
  Receipt Date: 20190919
  Transmission Date: 20191005
  Serious: Yes (Hospitalization)
  Sender: FDA-Public Use
  Company Number: US-SUN PHARMACEUTICAL INDUSTRIES LTD-2019R1-220470

PATIENT
  Age: 70 Year
  Sex: Male

DRUGS (2)
  1. CELLCEPT [Suspect]
     Active Substance: MYCOPHENOLATE MOFETIL\MYCOPHENOLATE MOFETIL HYDROCHLORIDE
     Indication: MYASTHENIA GRAVIS
     Dosage: 500 MILLIGRAM, BID
     Route: 065
  2. PREDNISONE. [Suspect]
     Active Substance: PREDNISONE
     Indication: MYASTHENIA GRAVIS
     Dosage: 15 MILLIGRAM, DAILY
     Route: 065

REACTIONS (4)
  - Cryptococcal cutaneous infection [Recovering/Resolving]
  - Skin lesion [Recovered/Resolved]
  - Pulmonary mass [Recovering/Resolving]
  - Cryptococcosis [Recovering/Resolving]
